FAERS Safety Report 15239484 (Version 1)
Quarter: 2018Q3

REPORT INFORMATION
  Report Type: Report from Study
  Country: FR (occurrence: FR)
  Receive Date: 20180803
  Receipt Date: 20180803
  Transmission Date: 20181010
  Serious: Yes (Hospitalization)
  Sender: FDA-Public Use
  Company Number: FR-TEVA-2018-FR-934020

PATIENT
  Age: 75 Year
  Sex: Male
  Weight: 63 kg

DRUGS (4)
  1. ERBITUX [Suspect]
     Active Substance: CETUXIMAB
     Indication: TONGUE NEOPLASM MALIGNANT STAGE UNSPECIFIED
     Route: 065
  2. CARBOPLATINE [Suspect]
     Active Substance: CARBOPLATIN
     Indication: TONGUE NEOPLASM MALIGNANT STAGE UNSPECIFIED
     Route: 065
     Dates: start: 20160708
  3. 5?FU                               /00098801/ [Suspect]
     Active Substance: FLUOROURACIL
     Indication: TONGUE NEOPLASM MALIGNANT STAGE UNSPECIFIED
     Route: 065
     Dates: start: 20160708
  4. ERBITUX [Suspect]
     Active Substance: CETUXIMAB
     Route: 065
     Dates: start: 20160708

REACTIONS (5)
  - Mucosal inflammation [Recovered/Resolved]
  - Decreased appetite [Recovered/Resolved]
  - Candida infection [Recovered/Resolved]
  - General physical health deterioration [Recovered/Resolved]
  - Anaemia [Recovered/Resolved]

NARRATIVE: CASE EVENT DATE: 20160919
